FAERS Safety Report 25357261 (Version 1)
Quarter: 2025Q2

REPORT INFORMATION
  Report Type: Spontaneous
  Country: US (occurrence: US)
  Receive Date: 20250526
  Receipt Date: 20250526
  Transmission Date: 20250716
  Serious: Yes (Hospitalization)
  Sender: MERCK SHARP & DOHME LLC
  Company Number: US-009507513-2286581

PATIENT
  Sex: Male

DRUGS (1)
  1. KEYTRUDA [Suspect]
     Active Substance: PEMBROLIZUMAB
     Indication: Lung neoplasm malignant

REACTIONS (4)
  - Pneumonia [Unknown]
  - Decreased appetite [Recovered/Resolved]
  - Drainage [Recovered/Resolved]
  - Diarrhoea [Recovered/Resolved]
